FAERS Safety Report 6817356-2 (Version None)
Quarter: 2010Q3

REPORT INFORMATION
  Report Type: 
  Country: None (occurrence: None)
  Receive Date: 20100706
  Receipt Date: 20100628
  Transmission Date: 20110219
  Serious: Yes (Hospitalization, Other)
  Sender: FDA-Public Use
  Company Number: FR-AMGEN-QUU415750

PATIENT
  Sex: Male

DRUGS (1)
  1. VECTIBIX [Suspect]
     Indication: PROSTATE CANCER
     Route: 042
     Dates: start: 20100415, end: 20100518

REACTIONS (7)
  - BLOOD PRESSURE SYSTOLIC INCREASED [None]
  - CHILLS [None]
  - CYANOSIS [None]
  - ERYTHEMA [None]
  - INFUSION RELATED REACTION [None]
  - SKIN WARM [None]
  - SNEEZING [None]
